FAERS Safety Report 5834547-8 (Version None)
Quarter: 2008Q3

REPORT INFORMATION
  Report Type: 
  Country: None (occurrence: None)
  Receive Date: 20080805
  Receipt Date: 20080728
  Transmission Date: 20090109
  Serious: Yes (Other)
  Sender: FDA-Public Use
  Company Number: GB-PFIZER INC-2008063242

PATIENT
  Sex: Female

DRUGS (1)
  1. PREGABALIN [Suspect]

REACTIONS (4)
  - GASTROINTESTINAL DISORDER [None]
  - INTESTINAL STOMA [None]
  - MUCOUS MEMBRANE DISORDER [None]
  - MUSCLE SPASMS [None]
